FAERS Safety Report 6623946-2 (Version None)
Quarter: 2010Q1

REPORT INFORMATION
  Report Type: 
  Country: None (occurrence: None)
  Receive Date: 20100304
  Receipt Date: 20100217
  Transmission Date: 20100710
  Serious: Yes (Hospitalization)
  Sender: FDA-Public Use
  Company Number: 2010000252

PATIENT
  Age: 74 Year
  Sex: Female
  Weight: 48 kg

DRUGS (11)
  1. TARCEVA [Suspect]
     Indication: LUNG ADENOCARCINOMA
     Dosage: 150 MG, QD, ORAL
     Route: 048
     Dates: start: 20091203, end: 20091225
  2. UNASYN [Suspect]
     Indication: INFECTION
     Dosage: 3 GM, BID; INTRAVENOUS
     Route: 042
     Dates: start: 20091210, end: 20091211
  3. BIAPENEM [Suspect]
     Indication: INFECTION
     Dosage: 0.3 GM, BID;
     Dates: start: 20091211, end: 20091227
  4. SPIRIVA [Concomitant]
  5. HOKUNALIN (TULOBUTEROL HYDROCHLORIDE) [Concomitant]
  6. FAMOTIDINE [Concomitant]
  7. NAIXAN (NAPROXEN SODIUM) [Concomitant]
  8. ZOLPIDEM TARTRATE [Concomitant]
  9. CODEINE PHOSPHATE (CODEINE PHOSPHATE) [Concomitant]
  10. BIO-THREE [Concomitant]
  11. ADSORBIN (ALUMINIUM SULICATE) [Concomitant]

REACTIONS (1)
  - PSEUDOMEMBRANOUS COLITIS [None]
